FAERS Safety Report 7207011-1 (Version None)
Quarter: 2011Q1

REPORT INFORMATION
  Report Type: 
  Country: None (occurrence: None)
  Receive Date: 20110103
  Receipt Date: 20101228
  Transmission Date: 20110831
  Serious: Yes (Hospitalization)
  Sender: FDA-Public Use
  Company Number: B0620218A

PATIENT
  Sex: Female

DRUGS (4)
  1. MODOPAR [Suspect]
     Dosage: 250MG SIX TIMES PER DAY
     Route: 048
     Dates: end: 20090819
  2. MIANSERINE [Suspect]
     Indication: DEPRESSION
     Route: 048
     Dates: end: 20090813
  3. REQUIP [Suspect]
     Dosage: 8MG TWICE PER DAY
     Route: 048
     Dates: end: 20090813
  4. RIVOTRIL [Suspect]
     Dosage: 2MG TWICE PER DAY
     Route: 048
     Dates: end: 20090828

REACTIONS (5)
  - CONFUSIONAL STATE [None]
  - ABNORMAL BEHAVIOUR [None]
  - AGITATION [None]
  - HALLUCINATION [None]
  - DELIRIUM [None]
